FAERS Safety Report 18955325 (Version 1)
Quarter: 2021Q1

REPORT INFORMATION
  Report Type: Spontaneous
  Country: SK (occurrence: SK)
  Receive Date: 20210301
  Receipt Date: 20210301
  Transmission Date: 20210420
  Serious: Yes (Death)
  Sender: FDA-Public Use
  Company Number: SK-TAKEDA-2021TUS012874

PATIENT
  Sex: Male
  Weight: 68 kg

DRUGS (2)
  1. FLEBOGAMMA DIF [IMMUNOGLOBULIN G HUMAN] [Concomitant]
     Dosage: 10 GRAM
     Route: 065
  2. HYQVIA [Suspect]
     Active Substance: HUMAN IMMUNOGLOBULIN G\HYALURONIDASE RECOMBINANT HUMAN
     Indication: CHRONIC LYMPHOCYTIC LEUKAEMIA
     Dosage: UNK UNK, MONTHLY
     Route: 042
     Dates: start: 20200617

REACTIONS (1)
  - COVID-19 [Fatal]
